FAERS Safety Report 13114666 (Version 2)
Quarter: 2017Q1

REPORT INFORMATION
  Report Type: Spontaneous
  Country: US (occurrence: US)
  Receive Date: 20170113
  Receipt Date: 20170125
  Transmission Date: 20170428
  Serious: Yes (Other)
  Sender: FDA-Public Use
  Company Number: US-CELGENEUS-USA-2017012526

PATIENT
  Age: 54 Year
  Sex: Female

DRUGS (3)
  1. OTEZLA [Suspect]
     Active Substance: APREMILAST
     Indication: PSORIATIC ARTHROPATHY
     Route: 048
     Dates: start: 20161214
  2. OTEZLA [Suspect]
     Active Substance: APREMILAST
     Route: 048
     Dates: end: 20170102
  3. OTEZLA [Suspect]
     Active Substance: APREMILAST
     Route: 048

REACTIONS (3)
  - Bowel movement irregularity [Recovered/Resolved]
  - Nausea [Recovered/Resolved]
  - Pain [Recovered/Resolved]

NARRATIVE: CASE EVENT DATE: 201612
